FAERS Safety Report 12874798 (Version 2)
Quarter: 2016Q4

REPORT INFORMATION
  Report Type: Report from Study
  Country: US (occurrence: US)
  Receive Date: 20161022
  Receipt Date: 20161024
  Transmission Date: 20170207
  Serious: Yes (Other)
  Sender: FDA-Public Use
  Company Number: US-AMGEN-USASL2016143516

PATIENT
  Age: 83 Year
  Sex: Female

DRUGS (1)
  1. REPATHA [Suspect]
     Active Substance: EVOLOCUMAB
     Indication: DRUG INTOLERANCE
     Dosage: 140
     Route: 065
     Dates: start: 20161007

REACTIONS (5)
  - Confusional state [Unknown]
  - Blood pressure decreased [Unknown]
  - Musculoskeletal pain [Unknown]
  - Off label use [Unknown]
  - Dizziness [Unknown]
